FAERS Safety Report 7535737-9 (Version None)
Quarter: 2011Q2

REPORT INFORMATION
  Report Type: 
  Country: None (occurrence: None)
  Receive Date: 20110602
  Receipt Date: 20110509
  Transmission Date: 20111010
  Serious: Yes (Other)
  Sender: FDA-Public Use
  Company Number: 20110385

PATIENT
  Sex: Male

DRUGS (1)
  1. DEXAMETHASONE SODIUM PHOSPHATE [Suspect]
     Indication: LOCALISED INFECTION

REACTIONS (5)
  - INJECTION SITE INFECTION [None]
  - PRODUCT QUALITY ISSUE [None]
  - IMPAIRED HEALING [None]
  - WOUND INFECTION [None]
  - PURULENCE [None]
